FAERS Safety Report 20139289 (Version 1)
Quarter: 2021Q4

REPORT INFORMATION
  Report Type: Spontaneous
  Country: US (occurrence: US)
  Receive Date: 20211202
  Receipt Date: 20211202
  Transmission Date: 20220303
  Serious: Yes (Other)
  Sender: FDA-Public Use
  Company Number: US-GLAXOSMITHKLINE-US2021GSK247323

PATIENT
  Sex: Male

DRUGS (2)
  1. ZANTAC [Suspect]
     Active Substance: RANITIDINE HYDROCHLORIDE
     Indication: Nausea
     Dosage: OCCASIONAL|UNKNOWN AT THIS TIME|PRESCRIPTION
     Route: 065
     Dates: start: 200006, end: 202006
  2. ZANTAC [Suspect]
     Active Substance: RANITIDINE HYDROCHLORIDE
     Indication: Nausea
     Dosage: OCCASIONAL|UNKNOWN AT THIS TIME|PRESCRIPTION
     Route: 065
     Dates: start: 200006, end: 202006

REACTIONS (1)
  - Colorectal cancer [Unknown]
